FAERS Safety Report 9349939 (Version 2)
Quarter: 2013Q3

REPORT INFORMATION
  Report Type: Report from Study
  Country: JP (occurrence: JP)
  Receive Date: 20130614
  Receipt Date: 20130923
  Transmission Date: 20140515
  Serious: Yes (Hospitalization, Other)
  Sender: FDA-Public Use
  Company Number: PHHY2013JP060075

PATIENT
  Age: 35 Year
  Sex: Female

DRUGS (29)
  1. AMN107 [Suspect]
     Indication: CHRONIC MYELOID LEUKAEMIA
     Dosage: 400 MG, DAILY
     Route: 048
     Dates: start: 20091015, end: 20091025
  2. AMN107 [Suspect]
     Dosage: 600 MG, DAILY
     Route: 048
     Dates: start: 20091026, end: 20091105
  3. AMN107 [Suspect]
     Dosage: 800 MG, DAILY
     Route: 048
     Dates: start: 20091106
  4. NEORAL [Concomitant]
     Dosage: UNK UKN, UNK
     Route: 048
  5. NEORAL [Concomitant]
     Dosage: 75 MG, UNK
     Route: 048
  6. SINGULAIR [Concomitant]
     Dosage: 10 MG, UNK
     Route: 048
  7. TAKEPRON [Concomitant]
     Dosage: 15 MG, UNK
     Route: 048
  8. BAKTAR [Concomitant]
     Dosage: 1 UNK, UNK
     Route: 048
  9. MUCOSTA [Concomitant]
     Dosage: 200 MG, UNK
     Route: 048
  10. MEDROL [Concomitant]
     Dosage: 12 MG, UNK
     Route: 048
  11. MEDROL [Concomitant]
     Dosage: UNK UKN, UNK
     Route: 048
  12. MEPTIN [Concomitant]
     Dosage: 50 UG, UNK
     Route: 048
  13. MOHRUS [Concomitant]
     Dosage: 20 MG, UNK
  14. MOHRUS [Concomitant]
     Dosage: 80 MG, UNK
  15. THEOLONG [Concomitant]
     Dosage: 100 MG, UNK
     Route: 048
  16. QVAR [Concomitant]
  17. UNIPHYL [Concomitant]
     Dosage: 200 MG, UNK
     Route: 048
  18. FUNGIZONE [Concomitant]
     Dosage: 6 UNK, UNK
     Route: 048
  19. OXYCONTIN [Concomitant]
     Dosage: UNK UKN, UNK
     Route: 048
     Dates: start: 20100309
  20. OXYCONTIN [Concomitant]
     Dosage: 10 MG, UNK
     Route: 048
  21. ALFAROL [Concomitant]
     Dosage: UNK UKN, UNK
     Dates: start: 20100322
  22. ALFAROL [Concomitant]
     Dosage: 0.5 UG, UNK
     Route: 048
  23. FLOMOX [Concomitant]
     Dosage: 300 MG, UNK
     Route: 048
     Dates: start: 20100310, end: 20100408
  24. FLOMOX [Concomitant]
     Dosage: 300 MG, UNK
     Route: 048
  25. FLOMOX [Concomitant]
     Dosage: 300 MG, UNK
     Route: 048
  26. SEREVENT [Concomitant]
     Dosage: UNK UKN, UNK
     Dates: start: 20130308
  27. LAC-B [Concomitant]
     Dosage: 3 G, UNK
     Route: 048
     Dates: start: 20100308
  28. CHLOR-TRIMETON [Concomitant]
     Dosage: 10 MG, UNK
     Route: 042
     Dates: start: 20100422, end: 20100424
  29. VENILON I [Concomitant]
     Dosage: 5 G, UNK
     Dates: start: 20100422, end: 20100424

REACTIONS (2)
  - Gamma-glutamyltransferase increased [Not Recovered/Not Resolved]
  - Asthma [Recovering/Resolving]
